FAERS Safety Report 6059231-X (Version None)
Quarter: 2009Q1

REPORT INFORMATION
  Report Type: 
  Country: None (occurrence: None)
  Receive Date: 20090130
  Receipt Date: 20090123
  Transmission Date: 20090719
  Serious: Yes (Hospitalization)
  Sender: FDA-Public Use
  Company Number: CH-MERCK-0901CHE00009

PATIENT
  Age: 75 Year
  Sex: Female

DRUGS (4)
  1. FOSAMAX PLUS D [Suspect]
     Indication: OSTEOGENESIS IMPERFECTA
     Route: 048
     Dates: start: 20081201
  2. ALENDRONATE SODIUM [Suspect]
     Indication: OSTEOGENESIS IMPERFECTA
     Route: 048
     Dates: start: 20040101, end: 20081201
  3. CALCIUM CARBONATE AND CHOLECALCIFEROL [Concomitant]
     Indication: OSTEOGENESIS IMPERFECTA
     Route: 048
  4. HORMONES (UNSPECIFIED) [Concomitant]
     Route: 065

REACTIONS (1)
  - PATHOLOGICAL FRACTURE [None]
